FAERS Safety Report 16196430 (Version 1)
Quarter: 2019Q2

REPORT INFORMATION
  Report Type: Spontaneous
  Country: US (occurrence: US)
  Receive Date: 20190309
  Receipt Date: 20190309
  Transmission Date: 20190711
  Serious: Yes (Hospitalization)
  Sender: FDA-Public Use
  Company Number: None

PATIENT
  Age: 59 Year
  Sex: Male
  Weight: 65.8 kg

DRUGS (1)
  1. 5-FLUOROURACIL (5-FU) [Suspect]
     Active Substance: FLUOROURACIL
     Dates: end: 20180823

REACTIONS (19)
  - Postoperative wound complication [None]
  - Orthostatic hypotension [None]
  - Gastrointestinal stoma output increased [None]
  - Pyelonephritis [None]
  - Fall [None]
  - Anaemia [None]
  - Vision blurred [None]
  - Fracture [None]
  - Hypovolaemia [None]
  - Electrolyte imbalance [None]
  - Optic neuropathy [None]
  - Diarrhoea [None]
  - Hypophagia [None]
  - Acidosis [None]
  - Neurological symptom [None]
  - Toxicity to various agents [None]
  - Corneal infiltrates [None]
  - Urinary tract infection [None]
  - Asthenia [None]

NARRATIVE: CASE EVENT DATE: 20190215
